FAERS Safety Report 4533103-1 (Version None)
Quarter: 2005Q1

REPORT INFORMATION
  Report Type: 
  Country: None (occurrence: None)
  Receive Date: 20041206
  Receipt Date: 20041014
  Transmission Date: 20050727
  Serious: No
  Sender: FDA-Public Use
  Company Number: USA041081118

PATIENT
  Age: 41 Year
  Sex: Female
  Weight: 85 kg

DRUGS (8)
  1. CYMBALTA [Suspect]
     Indication: MAJOR DEPRESSION
     Dosage: 30 MG DAY
     Dates: start: 20040929, end: 20041001
  2. LEXAPRO [Concomitant]
  3. PAXIL [Concomitant]
  4. EFFEXOR XR [Concomitant]
  5. ANDROGEL [Concomitant]
  6. TOPROL-XL [Concomitant]
  7. LOTREL [Concomitant]
  8. PREDNISONE [Concomitant]

REACTIONS (2)
  - HALLUCINATION, AUDITORY [None]
  - SUICIDAL IDEATION [None]
